FAERS Safety Report 10005781 (Version 1)
Quarter: 2014Q1

REPORT INFORMATION
  Report Type: Spontaneous
  Country: US (occurrence: US)
  Receive Date: 20140313
  Receipt Date: 20140313
  Transmission Date: 20141002
  Serious: No
  Sender: FDA-Public Use
  Company Number: US-BIOGENIDEC-2014BI021464

PATIENT
  Sex: Female
  Weight: 47 kg

DRUGS (13)
  1. TECFIDERA [Suspect]
     Indication: PRODUCT USED FOR UNKNOWN INDICATION
     Route: 048
  2. COUMADIN [Concomitant]
  3. SINEMET CR [Concomitant]
  4. NEURONTIN [Concomitant]
  5. PROMETHAZINE [Concomitant]
  6. DIAZEPAM [Concomitant]
  7. BACLOFEN [Concomitant]
  8. VITAMIN E [Concomitant]
  9. NEXIUM [Concomitant]
  10. TEMAZEPAM [Concomitant]
  11. LEXAPRO [Concomitant]
  12. ZANAFLEX [Concomitant]
  13. VITAMIN D2 [Concomitant]

REACTIONS (5)
  - Emotional disorder [Unknown]
  - Flushing [Unknown]
  - Rash [Unknown]
  - Pruritus [Unknown]
  - Erythema [Unknown]
